FAERS Safety Report 10868855 (Version 2)
Quarter: 2015Q2

REPORT INFORMATION
  Report Type: Spontaneous
  Country: US (occurrence: US)
  Receive Date: 20150225
  Receipt Date: 20150514
  Transmission Date: 20150821
  Serious: Yes (Other)
  Sender: FDA-Public Use
  Company Number: US-ASTRAZENECA-2015SE17238

PATIENT
  Age: 17320 Day

DRUGS (22)
  1. CLARITHROMYCIN. [Concomitant]
     Active Substance: CLARITHROMYCIN
     Dates: start: 20120910
  2. BYDUREON [Concomitant]
     Active Substance: EXENATIDE
     Dates: start: 20121105
  3. CALCIUM [Concomitant]
     Active Substance: CALCIUM
  4. CLARINEX [Concomitant]
     Active Substance: DESLORATADINE
     Dates: start: 20121003
  5. METRONIDAZOLE. [Concomitant]
     Active Substance: METRONIDAZOLE
     Dates: start: 20121102
  6. ALVESCO [Concomitant]
     Active Substance: CICLESONIDE
     Dates: start: 20121119
  7. AMOX [Concomitant]
     Active Substance: UNSPECIFIED INGREDIENT
     Dates: start: 20121003
  8. MULTIVITAMIN [Concomitant]
     Active Substance: VITAMINS
     Dosage: 1/2 THREE PER WEEK
  9. B-12 COMPLEX [Concomitant]
     Dosage: 1 THREE PER WEEK
  10. BIOTIN [Concomitant]
     Active Substance: BIOTIN
  11. ZINC [Concomitant]
     Active Substance: ZINC\ZINC CHLORIDE
  12. MAGNESIUM [Concomitant]
     Active Substance: MAGNESIUM
  13. BYETTA [Suspect]
     Active Substance: EXENATIDE
     Route: 065
     Dates: start: 20120901, end: 20131019
  14. BEYAZ [Concomitant]
     Active Substance: DROSPIRENONE\ETHINYL ESTRADIOL\LEVOMEFOLATE CALCIUM
     Dates: start: 20131011
  15. VITAMIN D [Concomitant]
     Active Substance: CHOLECALCIFEROL
  16. IRON [Concomitant]
     Active Substance: IRON
  17. LISINOPRIL. [Concomitant]
     Active Substance: LISINOPRIL
  18. AMBIEN [Concomitant]
     Active Substance: ZOLPIDEM TARTRATE
     Dosage: 5-10 DAYS PER NIGHT
  19. FOLIC ACID. [Concomitant]
     Active Substance: FOLIC ACID
  20. BYETTA [Suspect]
     Active Substance: EXENATIDE
     Route: 065
     Dates: start: 20121010
  21. BYETTA [Suspect]
     Active Substance: EXENATIDE
     Route: 065
     Dates: start: 20130610
  22. MONTELUKAST SODIUM. [Concomitant]
     Active Substance: MONTELUKAST SODIUM
     Dates: start: 20130225

REACTIONS (2)
  - Pancreatic carcinoma [Unknown]
  - Pancreatitis [Unknown]

NARRATIVE: CASE EVENT DATE: 20131019
